FAERS Safety Report 6564748-5 (Version None)
Quarter: 2010Q1

REPORT INFORMATION
  Report Type: 
  Country: None (occurrence: None)
  Receive Date: 20100201
  Receipt Date: 20100111
  Transmission Date: 20100710
  Serious: Yes (Hospitalization)
  Sender: FDA-Public Use
  Company Number: PHHY2010CN02265

PATIENT
  Age: 46 Year
  Sex: Male

DRUGS (4)
  1. CARBAMAZEPINE [Suspect]
     Indication: EPILEPSY
     Dosage: UNK
     Route: 048
  2. CARBAMAZEPINE [Suspect]
     Dosage: 200 TABLETS ONCE
     Route: 048
  3. DIAZEPAM [Suspect]
     Route: 048
  4. DIAZEPAM [Suspect]
     Dosage: 200 TABLETS ONCE

REACTIONS (17)
  - BLOOD GLUCOSE INCREASED [None]
  - COMA [None]
  - DRUG TOXICITY [None]
  - ENDOTOXIC SHOCK [None]
  - HYPOTONIA [None]
  - INCREASED UPPER AIRWAY SECRETION [None]
  - INTENTIONAL OVERDOSE [None]
  - LOSS OF CONSCIOUSNESS [None]
  - MYOCARDIAL ISCHAEMIA [None]
  - NAUSEA [None]
  - PNEUMONIA ASPIRATION [None]
  - PUPILLARY REFLEX IMPAIRED [None]
  - RALES [None]
  - SALIVARY HYPERSECRETION [None]
  - SINUS TACHYCARDIA [None]
  - VOMITING [None]
  - WHEEZING [None]
